FAERS Safety Report 10364173 (Version 2)
Quarter: 2015Q4

REPORT INFORMATION
  Report Type: Report from Study
  Country: US (occurrence: US)
  Receive Date: 20140806
  Receipt Date: 20151015
  Transmission Date: 20160304
  Serious: Yes (Other)
  Sender: FDA-Public Use
  Company Number: US-ROCHE-1445516

PATIENT
  Age: 51 Year
  Sex: Female
  Weight: 80.36 kg

DRUGS (7)
  1. INCIVEK [Suspect]
     Active Substance: TELAPREVIR
     Dosage: EVERY 7-9 HRS WITH FOOD
     Route: 048
  2. INCIVEK [Suspect]
     Active Substance: TELAPREVIR
     Indication: CHRONIC HEPATITIS C
     Dosage: 32 DAYS
     Route: 048
     Dates: start: 20130826, end: 20130926
  3. PEGASYS [Suspect]
     Active Substance: PEGINTERFERON ALFA-2A
     Indication: CHRONIC HEPATITIS C
     Dosage: 180 MCG/0.5 ML; 32 DAYS
     Route: 058
     Dates: start: 20130826, end: 20130926
  4. CITALOPRAM [Concomitant]
     Active Substance: CITALOPRAM HYDROBROMIDE
  5. COPEGUS [Suspect]
     Active Substance: RIBAVIRIN
     Indication: CHRONIC HEPATITIS C
     Dosage: 600MG AM AND 400MG PM, 32 DAYS
     Route: 048
     Dates: start: 20130826, end: 20130926
  6. ADVIL [Concomitant]
     Active Substance: IBUPROFEN
  7. PRILOSEC [Concomitant]
     Active Substance: OMEPRAZOLE MAGNESIUM

REACTIONS (3)
  - Asthenia [Unknown]
  - Depression [Unknown]
  - Visual impairment [Unknown]

NARRATIVE: CASE EVENT DATE: 20130916
